FAERS Safety Report 5287287-0 (Version None)
Quarter: 2007Q1

REPORT INFORMATION
  Report Type: 
  Country: None (occurrence: None)
  Receive Date: 20070116
  Receipt Date: 20061004
  Transmission Date: 20070707
  Serious: No
  Sender: FDA-Public Use
  Company Number: 2006SP003560

PATIENT
  Age: 36 Year
  Sex: Female
  Weight: 56.246 kg

DRUGS (4)
  1. LUNESTA [Suspect]
     Indication: INSOMNIA
     Dosage: SEE IMAGE
     Route: 048
     Dates: start: 20060626, end: 20060101
  2. LUNESTA [Suspect]
     Indication: INSOMNIA
     Dosage: SEE IMAGE
     Route: 048
     Dates: start: 20060101, end: 20060701
  3. YAMIN [Concomitant]
  4. ZYRTEC [Concomitant]

REACTIONS (2)
  - ASTHENIA [None]
  - INSOMNIA [None]
